FAERS Safety Report 6735949-8 (Version None)
Quarter: 2010Q2

REPORT INFORMATION
  Report Type: 
  Country: None (occurrence: None)
  Receive Date: 20100521
  Receipt Date: 20100514
  Transmission Date: 20101027
  Serious: Yes (Hospitalization)
  Sender: FDA-Public Use
  Company Number: B0652886A

PATIENT
  Sex: Male

DRUGS (8)
  1. SERETIDE DISKUS [Suspect]
     Indication: ASTHMA
     Route: 055
  2. REQUIP [Suspect]
     Indication: PARKINSON'S DISEASE
     Dosage: 2MG SIX TIMES PER DAY
     Route: 048
  3. COKENZEN [Suspect]
     Dosage: 1TAB PER DAY
     Route: 048
     Dates: end: 20100503
  4. LANSOPRAZOLE [Suspect]
     Indication: DRUG USE FOR UNKNOWN INDICATION
     Dosage: 30MG PER DAY
     Route: 048
  5. PLAVIX [Suspect]
     Indication: DRUG USE FOR UNKNOWN INDICATION
     Dosage: 75MG PER DAY
     Route: 048
  6. BRONCHODUAL [Suspect]
     Indication: ASTHMA
     Dosage: 3UNIT PER DAY
     Route: 055
  7. PRAVASTATIN [Suspect]
     Dosage: 1UNIT PER DAY
     Route: 048
     Dates: start: 20090622
  8. MODOPAR [Suspect]
     Indication: PARKINSON'S DISEASE
     Dosage: 250MG FOUR TIMES PER DAY
     Route: 048

REACTIONS (1)
  - ASTHMA [None]
